FAERS Safety Report 21653165 (Version 1)
Quarter: 2022Q4

REPORT INFORMATION
  Report Type: Spontaneous
  Country: CN (occurrence: CN)
  Receive Date: 20221128
  Receipt Date: 20221128
  Transmission Date: 20230113
  Serious: Yes (Hospitalization, Other)
  Sender: FDA-Public Use
  Company Number: CN-ABBVIE-4215217

PATIENT
  Sex: Male

DRUGS (4)
  1. VENCLEXTA [Suspect]
     Active Substance: VENETOCLAX
     Indication: Acute leukaemia
     Dosage: 100 MILLIGRAM
     Route: 048
     Dates: start: 20221013, end: 20221016
  2. VENCLEXTA [Suspect]
     Active Substance: VENETOCLAX
     Indication: Acute leukaemia
     Dosage: 200 MILLIGRAM
     Route: 048
     Dates: start: 20221017, end: 20221101
  3. AZACITIDINE [Suspect]
     Active Substance: AZACITIDINE
     Indication: Acute leukaemia
     Dosage: 100 MILLIGRAM
     Route: 058
     Dates: start: 20221013, end: 20221014
  4. AZACITIDINE [Suspect]
     Active Substance: AZACITIDINE
     Indication: Acute leukaemia
     Dosage: 100 MILLIGRAM
     Route: 058
     Dates: start: 20221017, end: 20221021

REACTIONS (7)
  - Myelosuppression [Recovering/Resolving]
  - Neutrophil count abnormal [Unknown]
  - Off label use [Unknown]
  - White blood cell count abnormal [Unknown]
  - Haemoglobin abnormal [Unknown]
  - Platelet count abnormal [Unknown]
  - Full blood count decreased [Recovering/Resolving]

NARRATIVE: CASE EVENT DATE: 20220101
